FAERS Safety Report 9156400 (Version 2)
Quarter: 2013Q1

REPORT INFORMATION
  Report Type: Spontaneous
  Country: FR (occurrence: FR)
  Receive Date: 20130312
  Receipt Date: 20130314
  Transmission Date: 20140127
  Serious: Yes (Life-Threatening, Hospitalization)
  Sender: FDA-Public Use
  Company Number: FR-PFIZER INC-2013078463

PATIENT
  Age: 6 Year
  Sex: Female
  Weight: 24 kg

DRUGS (1)
  1. ADVIL ENFANTS ET NOURRISSONS [Suspect]
     Indication: PYREXIA
     Dosage: ONE DOSE ON MORNING AT 11 AM AND AT 5 PM
     Dates: start: 201302

REACTIONS (6)
  - Condition aggravated [Unknown]
  - Immune system disorder [Unknown]
  - Cardiovascular disorder [Unknown]
  - Heart rate increased [Unknown]
  - Blood pressure decreased [Unknown]
  - Cough [Not Recovered/Not Resolved]
